FAERS Safety Report 9955429 (Version 1)
Quarter: 2014Q1

REPORT INFORMATION
  Report Type: Report from Study
  Country: US (occurrence: US)
  Receive Date: 20140304
  Receipt Date: 20140304
  Transmission Date: 20141002
  Serious: No
  Sender: FDA-Public Use
  Company Number: US-ABBVIE-13P-163-1083837-00

PATIENT
  Age: 58 Year
  Sex: Male
  Weight: 93.98 kg

DRUGS (8)
  1. HUMIRA [Suspect]
     Indication: PSORIASIS
     Dates: start: 20130307, end: 20130307
  2. HUMIRA [Suspect]
     Indication: COLITIS ULCERATIVE
     Dates: end: 20130418
  3. HUMIRA [Suspect]
     Indication: PSORIATIC ARTHROPATHY
  4. LISINOPRIL [Concomitant]
     Indication: HYPERTENSION
  5. PROTONIX [Concomitant]
     Indication: GASTROOESOPHAGEAL REFLUX DISEASE
  6. LIALDA [Concomitant]
     Indication: COLITIS ULCERATIVE
  7. VITAMIN B12 [Concomitant]
     Indication: VITAMIN SUPPLEMENTATION
  8. TYLENOL ARTHRITIS [Concomitant]
     Indication: PSORIATIC ARTHROPATHY

REACTIONS (8)
  - Pruritus [Not Recovered/Not Resolved]
  - Psoriasis [Not Recovered/Not Resolved]
  - Psoriasis [Not Recovered/Not Resolved]
  - Erythema [Not Recovered/Not Resolved]
  - Injection site swelling [Not Recovered/Not Resolved]
  - Drug hypersensitivity [Not Recovered/Not Resolved]
  - Injection site pain [Not Recovered/Not Resolved]
  - Drug effect decreased [Recovered/Resolved]
